FAERS Safety Report 10220105 (Version 1)
Quarter: 2014Q2

REPORT INFORMATION
  Report Type: Report from Study
  Country: FR (occurrence: FR)
  Receive Date: 20140605
  Receipt Date: 20140605
  Transmission Date: 20141212
  Serious: Yes (Hospitalization)
  Sender: FDA-Public Use
  Company Number: FR-DSJP-DSE-2014-109998

PATIENT
  Sex: 0

DRUGS (6)
  1. AXELER 40 MG/ 10 MG [Suspect]
     Indication: HYPERTENSION
     Dosage: 40/10 MG, QD
     Route: 048
     Dates: end: 20130617
  2. AXELER 40 MG/ 10 MG [Suspect]
     Dosage: 40/10 MG, QD
     Route: 048
     Dates: start: 20130710, end: 20130819
  3. HYPERIUM [Concomitant]
     Indication: PRODUCT USED FOR UNKNOWN INDICATION
     Route: 048
  4. TEMERIT [Concomitant]
     Indication: PRODUCT USED FOR UNKNOWN INDICATION
     Route: 048
  5. LASILIX                            /00032601/ [Concomitant]
     Indication: PRODUCT USED FOR UNKNOWN INDICATION
     Route: 048
  6. LEVOTHYROX [Concomitant]
     Indication: PRODUCT USED FOR UNKNOWN INDICATION
     Route: 048

REACTIONS (3)
  - Gastrointestinal disorder [Unknown]
  - Prerenal failure [Unknown]
  - Intestinal villi atrophy [Unknown]
